FAERS Safety Report 4688531-0 (Version None)
Quarter: 2005Q2

REPORT INFORMATION
  Report Type: 
  Country: None (occurrence: None)
  Receive Date: 20050609
  Receipt Date: 20050525
  Transmission Date: 20051028
  Serious: Yes (Hospitalization)
  Sender: FDA-Public Use
  Company Number: DEU-2005-0001448

PATIENT
  Age: 87 Year
  Sex: Female
  Weight: 66 kg

DRUGS (6)
  1. OXYGESIC 5 MG (OXY CR TAB 5 MG) (OXYCODONE HYDROCHLORIDE) 5 MG TABLET [Suspect]
     Indication: PAIN
     Dosage: 5 MG BID ORAL
     Route: 048
     Dates: start: 20050104, end: 20050217
  2. TRAMADOL HCL [Concomitant]
  3. METAMIZOLE SODIUM [Concomitant]
  4. METOCLOPRAMIDE [Concomitant]
  5. LACTULOSE [Concomitant]
  6. LAXOBERAL ^BOEHRINGER INGELHEIM^ (SODIUM PICOSULFATE) [Concomitant]

REACTIONS (1)
  - FAECALITH [None]
